FAERS Safety Report 15450373 (Version 1)
Quarter: 2018Q4

REPORT INFORMATION
  Report Type: Report from Study
  Country: US (occurrence: US)
  Receive Date: 20181001
  Receipt Date: 20181001
  Transmission Date: 20190204
  Serious: Yes (Death)
  Sender: FDA-Public Use
  Company Number: US-ARIAD PHARMACEUTICALS, INC-2017US008014

PATIENT
  Age: 74 Year
  Sex: Male

DRUGS (3)
  1. PONATINIB [Suspect]
     Active Substance: PONATINIB
     Dosage: 60 MG, QD
     Route: 048
     Dates: end: 201803
  2. PONATINIB [Suspect]
     Active Substance: PONATINIB
     Dosage: 30 MG, QD
     Route: 048
     Dates: end: 201803
  3. PONATINIB [Suspect]
     Active Substance: PONATINIB
     Indication: ACUTE LYMPHOCYTIC LEUKAEMIA
     Dosage: 45 MG, QD
     Route: 048
     Dates: start: 20170315

REACTIONS (14)
  - Constipation [Not Recovered/Not Resolved]
  - Laboratory test abnormal [Unknown]
  - Sleep apnoea syndrome [Unknown]
  - Death [Fatal]
  - Off label use [Unknown]
  - Gastrointestinal disorder [Unknown]
  - Dry skin [Recovered/Resolved]
  - Paraesthesia [Recovered/Resolved]
  - Skin exfoliation [Recovered/Resolved]
  - Flushing [Recovered/Resolved]
  - Muscular weakness [Unknown]
  - Sleep disorder [Not Recovered/Not Resolved]
  - Platelet count decreased [Unknown]
  - Fatigue [Recovered/Resolved]

NARRATIVE: CASE EVENT DATE: 20180521
